FAERS Safety Report 6665495-1 (Version None)
Quarter: 2010Q2

REPORT INFORMATION
  Report Type: 
  Country: None (occurrence: None)
  Receive Date: 20100402
  Receipt Date: 20100326
  Transmission Date: 20101027
  Serious: Yes (Death)
  Sender: FDA-Public Use
  Company Number: JP-PFIZER INC-2010011612

PATIENT
  Age: 86 Year
  Sex: Male
  Weight: 48.2 kg

DRUGS (6)
  1. NORVASC [Suspect]
     Dosage: 5 MG, UNK
     Route: 048
     Dates: start: 20100121, end: 20100122
  2. UNASYN [Suspect]
     Indication: PYREXIA
     Dosage: 1.5 G, 2X/DAY
     Route: 042
     Dates: start: 20100121
  3. PLETAL [Suspect]
     Dosage: 100 MG, UNK
     Route: 048
     Dates: start: 20100121, end: 20100122
  4. PANALDINE [Suspect]
     Dosage: 100 MG, UNK
     Route: 048
     Dates: start: 20100121, end: 20100122
  5. DUTASTERIDE [Suspect]
     Indication: BENIGN PROSTATIC HYPERPLASIA
     Dosage: 0.5 MG, 1X/DAY
     Route: 048
     Dates: end: 20100122
  6. EVIPROSTAT [Suspect]
     Indication: BENIGN PROSTATIC HYPERPLASIA
     Dosage: 1 DF, UNK
     Route: 048

REACTIONS (4)
  - BLOOD PRESSURE DECREASED [None]
  - CARDIAC FAILURE CHRONIC [None]
  - CARDIO-RESPIRATORY ARREST [None]
  - MEDICATION ERROR [None]
